FAERS Safety Report 4711614-3 (Version None)
Quarter: 2005Q2

REPORT INFORMATION
  Report Type: 
  Country: None (occurrence: None)
  Receive Date: 20050629
  Receipt Date: 20050302
  Transmission Date: 20051028
  Serious: No
  Sender: FDA-Public Use
  Company Number: 05P-163-0288568-00

PATIENT
  Age: 72 Year
  Sex: Female
  Weight: 104 kg

DRUGS (8)
  1. HUMIRA [Suspect]
     Indication: RHEUMATOID ARTHRITIS
     Dosage: 40 MG, 1 IN 1 WK, SUBCUTANEOUS
     Route: 058
     Dates: start: 20040501, end: 20050204
  2. AMLODIPINE BESYLATE [Concomitant]
  3. TRIAMTERENE [Concomitant]
  4. LANSOPRAZOLE [Concomitant]
  5. RALOXIFENE HCL [Concomitant]
  6. TRAZODONE HCL [Concomitant]
  7. HYDROXYZINE EMBONATE [Concomitant]
  8. ZOLPIDEM TARTRATE [Concomitant]

REACTIONS (4)
  - ERYTHEMA [None]
  - RASH PAPULAR [None]
  - SKIN BURNING SENSATION [None]
  - SKIN EXFOLIATION [None]
